FAERS Safety Report 5860114-6 (Version None)
Quarter: 2008Q3

REPORT INFORMATION
  Report Type: 
  Country: None (occurrence: None)
  Receive Date: 20080827
  Receipt Date: 20080815
  Transmission Date: 20090109
  Serious: Yes (Hospitalization, Other)
  Sender: FDA-Public Use
  Company Number: US-PFIZER INC-2008068555

PATIENT
  Sex: Female
  Weight: 45.4 kg

DRUGS (5)
  1. XALATAN [Suspect]
     Indication: GLAUCOMA
  2. DETROL LA [Suspect]
     Indication: BLADDER DISORDER
     Dates: start: 20080101
  3. DRUG, UNSPECIFIED [Suspect]
     Indication: BLADDER DISORDER
  4. ENALAPRIL MALEATE [Concomitant]
     Indication: BLOOD PRESSURE
  5. OPHTHALMOLOGICALS [Concomitant]
     Indication: PRURITUS

REACTIONS (12)
  - BLADDER DISORDER [None]
  - COUGH [None]
  - DECREASED APPETITE [None]
  - DRUG ADMINISTRATION ERROR [None]
  - DRUG INEFFECTIVE [None]
  - DRUG INTOLERANCE [None]
  - GAIT DISTURBANCE [None]
  - HYPOAESTHESIA [None]
  - KNEE OPERATION [None]
  - MEMORY IMPAIRMENT [None]
  - POSTNASAL DRIP [None]
  - WEIGHT DECREASED [None]
